FAERS Safety Report 4799297-8 (Version None)
Quarter: 2005Q4

REPORT INFORMATION
  Report Type: 
  Country: None (occurrence: None)
  Receive Date: 20051013
  Receipt Date: 20050919
  Transmission Date: 20060501
  Serious: Yes (Congenital Anomaly)
  Sender: FDA-Public Use
  Company Number: IBF20050022

PATIENT
  Weight: 2.85 kg

DRUGS (1)
  1. IBUPROFEN [Suspect]
     Indication: HEADACHE
     Route: 064
     Dates: start: 20040101, end: 20040101

REACTIONS (7)
  - CAESAREAN SECTION [None]
  - CARDIOMEGALY [None]
  - DRUG EXPOSURE DURING PREGNANCY [None]
  - DUCTUS ARTERIOSUS STENOSIS FOETAL [None]
  - FOETAL DISORDER [None]
  - PULMONARY VALVE INCOMPETENCE [None]
  - TRICUSPID VALVE INCOMPETENCE [None]
